FAERS Safety Report 14495426 (Version 1)
Quarter: 2018Q1

REPORT INFORMATION
  Report Type: Spontaneous
  Country: US (occurrence: US)
  Receive Date: 20180206
  Receipt Date: 20180206
  Transmission Date: 20180509
  Serious: No
  Sender: FDA-Public Use
  Company Number: US-SMITH AND NEPHEW, INC-2017SMT00344

PATIENT
  Age: 52 Year
  Sex: Female

DRUGS (6)
  1. LISINOPRIL. [Concomitant]
     Active Substance: LISINOPRIL
  2. JANUVIA [Concomitant]
     Active Substance: SITAGLIPTIN PHOSPHATE
  3. VICTOZA [Concomitant]
     Active Substance: LIRAGLUTIDE
  4. KEFLEX [Suspect]
     Active Substance: CEPHALEXIN
     Indication: STREPTOCOCCAL INFECTION
  5. REGRANEX [Suspect]
     Active Substance: BECAPLERMIN
     Indication: INCISION SITE ULCER
     Dosage: UNK UNK, 1X/DAY ON IN THE MORNING AND OFF AT NIGHT BEFORE BED
     Route: 061
     Dates: start: 20170505
  6. KEFLEX [Suspect]
     Active Substance: CEPHALEXIN
     Indication: STAPHYLOCOCCAL INFECTION
     Dosage: 500 MG, 2X/DAY
     Dates: start: 20170505

REACTIONS (1)
  - Application site pain [Not Recovered/Not Resolved]

NARRATIVE: CASE EVENT DATE: 20170505
